FAERS Safety Report 9669325 (Version 4)
Quarter: 2013Q4

REPORT INFORMATION
  Report Type: Spontaneous
  Country: JP (occurrence: JP)
  Receive Date: 20131105
  Receipt Date: 20131213
  Transmission Date: 20140711
  Serious: Yes (Other)
  Sender: FDA-Public Use
  Company Number: JP-JNJFOC-20131015022

PATIENT
  Age: 41 Year
  Sex: Male

DRUGS (9)
  1. FINIBAX [Suspect]
     Indication: PYELONEPHRITIS
     Dosage: 1.5 G/DAY
     Route: 041
     Dates: start: 20131018, end: 20131022
  2. FOY [Concomitant]
     Indication: PYELONEPHRITIS
     Route: 041
     Dates: start: 20131015, end: 20131021
  3. CILOSTAZOL [Concomitant]
     Indication: CEREBRAL INFARCTION
     Route: 048
     Dates: start: 20131015
  4. ZOSYN [Concomitant]
     Indication: PYELONEPHRITIS
     Route: 041
     Dates: start: 20131023
  5. ZOSYN [Concomitant]
     Indication: PYELONEPHRITIS
     Route: 041
     Dates: start: 20131015, end: 20131018
  6. SOLDEM 3A [Concomitant]
     Route: 065
  7. LACTEC [Concomitant]
     Route: 065
  8. BFLUID [Concomitant]
     Route: 065
  9. SUBVITAN [Concomitant]
     Route: 065

REACTIONS (2)
  - Altered state of consciousness [Recovered/Resolved]
  - Convulsion [Recovered/Resolved]
